FAERS Safety Report 11148980 (Version 2)
Quarter: 2015Q2

REPORT INFORMATION
  Report Type: Report from Study
  Country: BR (occurrence: BR)
  Receive Date: 20150529
  Receipt Date: 20150611
  Transmission Date: 20150821
  Serious: Yes (Death)
  Sender: FDA-Public Use
  Company Number: PHHY2015BR064537

PATIENT
  Sex: Female
  Weight: 50 kg

DRUGS (1)
  1. EXJADE [Suspect]
     Active Substance: DEFERASIROX
     Indication: MYELODYSPLASTIC SYNDROME
     Dosage: 4 DF (40 MG/KG) QD
     Route: 048
     Dates: start: 201206

REACTIONS (4)
  - Respiratory failure [Fatal]
  - Lung disorder [Fatal]
  - Asthenia [Fatal]
  - Myelodysplastic syndrome [Fatal]
